FAERS Safety Report 5686084-1 (Version None)
Quarter: 2008Q1

REPORT INFORMATION
  Report Type: 
  Country: None (occurrence: None)
  Receive Date: 20080328
  Receipt Date: 20070725
  Transmission Date: 20080703
  Serious: No
  Sender: FDA-Public Use
  Company Number: US-BAYER-US-2007-027934

PATIENT
  Sex: Male

DRUGS (3)
  1. BETAPACE AF [Suspect]
     Indication: ATRIAL FIBRILLATION
     Dosage: UNIT DOSE: 80 MG
     Dates: end: 20070728
  2. BETAPACE AF [Suspect]
     Dosage: UNIT DOSE: 80 MG
     Dates: start: 20070730
  3. BETAPACE [Concomitant]
     Indication: ATRIAL FIBRILLATION
     Dates: start: 20070729, end: 20070730

REACTIONS (2)
  - DRUG PRESCRIBING ERROR [None]
  - WRONG DRUG ADMINISTERED [None]
